FAERS Safety Report 5196459-5 (Version None)
Quarter: 2006Q4

REPORT INFORMATION
  Report Type: 
  Country: None (occurrence: None)
  Receive Date: 20061227
  Receipt Date: 20061215
  Transmission Date: 20070319
  Serious: Yes (Other)
  Sender: FDA-Public Use
  Company Number: 151065ISR

PATIENT
  Sex: Male

DRUGS (1)
  1. SERTRALINE [Suspect]

REACTIONS (3)
  - NEURALGIA [None]
  - OBESITY [None]
  - RHEUMATOID ARTHRITIS [None]
